FAERS Safety Report 21818810 (Version 1)
Quarter: 2023Q1

REPORT INFORMATION
  Report Type: Spontaneous
  Country: DE (occurrence: DE)
  Receive Date: 20230104
  Receipt Date: 20230104
  Transmission Date: 20230418
  Serious: Yes (Hospitalization)
  Sender: FDA-Public Use
  Company Number: DE-CHEPLA-2022009913

PATIENT
  Age: 84 Year
  Sex: Female

DRUGS (15)
  1. OMEPRAZOLE [Suspect]
     Active Substance: OMEPRAZOLE
     Indication: Prophylaxis
     Dosage: 20 MILLIGRAM (AS NECESSARY)
     Route: 048
  2. CALCIUM CARBONATE [Suspect]
     Active Substance: CALCIUM CARBONATE
     Indication: Hypoparathyroidism
     Dosage: 500 MILLIGRAM, QD (1-0-0)
     Route: 048
     Dates: start: 202104
  3. TORSEMIDE [Suspect]
     Active Substance: TORSEMIDE
     Indication: Oedema
     Dosage: 5 MILLIGRAM, QD (1-0-0)
     Route: 048
  4. CYMBALTA [Suspect]
     Active Substance: DULOXETINE HYDROCHLORIDE
     Indication: Product used for unknown indication
     Dosage: 60 MILLIGRAM, QD (0-0-1)
     Route: 048
  5. METHOCARBAMOL [Suspect]
     Active Substance: METHOCARBAMOL
     Indication: Fibromyalgia
     Dosage: 750 MILLIGRAM, QD (0-0-0-1)
     Route: 048
  6. MAGNESIUM [Suspect]
     Active Substance: MAGNESIUM
     Indication: Product used for unknown indication
     Dosage: 150 MILLIGRAM (1-0-0)
     Route: 048
     Dates: start: 202105
  7. CANDESARTAN CILEXETIL [Suspect]
     Active Substance: CANDESARTAN CILEXETIL
     Indication: Hypertension
     Dosage: 1 DOSAGE FORM, QD (8/12,5 MG, 1-0-0)
     Route: 048
  8. NALOXONE HYDROCHLORIDE\TILIDINE HYDROCHLORIDE [Suspect]
     Active Substance: NALOXONE HYDROCHLORIDE\TILIDINE HYDROCHLORIDE
     Indication: Fibromyalgia
     Dosage: 2 DOSAGE FORM, QD (200 MG/16 MG, 1-0-1)
     Route: 048
  9. CALCIUM\CHOLECALCIFEROL [Suspect]
     Active Substance: CALCIUM\CHOLECALCIFEROL
     Indication: Hypoparathyroidism
     Dosage: 500 MG/400 IE 0-1-0
     Route: 048
     Dates: end: 20221031
  10. NATPARA (PARATHYROID HORMONE) [Suspect]
     Active Substance: PARATHYROID HORMONE
     Indication: Hypoparathyroidism
     Dosage: 25 MILLIGRAM, QD (25 ?G 1X TGL., S.C.)
     Route: 058
     Dates: start: 20180420
  11. HYDROCHLOROTHIAZIDE\METOPROLOL TARTRATE [Suspect]
     Active Substance: HYDROCHLOROTHIAZIDE\METOPROLOL TARTRATE
     Indication: Hypertension
     Dosage: 0.5 DOSAGE FORM, QD (12,5/100 MG, 0,5-0-0)
     Route: 048
  12. CALCITRIOL [Suspect]
     Active Substance: CALCITRIOL
     Indication: Hypoparathyroidism
     Dosage: 0.5 MICROGRAM, QD (0,25 ?G, 1-0-1)
     Route: 048
  13. CALCITRIOL [Suspect]
     Active Substance: CALCITRIOL
     Dosage: 1 MICROGRAM, QD (0,25 ?G, 1-0-1)
     Route: 048
  14. LEVOTHYROXINE SODIUM [Suspect]
     Active Substance: LEVOTHYROXINE SODIUM
     Indication: Thyroidectomy
     Dosage: 100 ?G AND 75 ?G ALTERNATELY, 1-0-0
     Route: 048
  15. LEVOTHYROXINE SODIUM [Suspect]
     Active Substance: LEVOTHYROXINE SODIUM
     Dosage: 100 ?G AND 75 ?G ALTERNATELY, 1-0-0
     Route: 048

REACTIONS (2)
  - Dyspnoea [Not Recovered/Not Resolved]
  - Product use in unapproved indication [Not Recovered/Not Resolved]

NARRATIVE: CASE EVENT DATE: 20221029
